FAERS Safety Report 5016583-7 (Version None)
Quarter: 2006Q2

REPORT INFORMATION
  Report Type: 
  Country: None (occurrence: None)
  Receive Date: 20060602
  Receipt Date: 20060519
  Transmission Date: 20061013
  Serious: Yes (Other)
  Sender: FDA-Public Use
  Company Number: GXKR2006TR02854

PATIENT
  Age: 38 Year
  Sex: Female

DRUGS (9)
  1. PREDNISOLONE (NGX) [Suspect]
     Indication: RENAL TRANSPLANT
     Dosage: 500 MG, UNK
     Route: 065
  2. PREDNISOLONE (NGX) [Suspect]
     Dosage: 30 MG, UNK
     Route: 065
  3. PREDNISOLONE (NGX) [Suspect]
     Dosage: 25 MG, UNK
     Route: 065
  4. PREDNISOLONE (NGX) [Suspect]
     Dosage: 15 MG, UNK
     Route: 065
  5. PREDNISOLONE (NGX) [Suspect]
     Dosage: 10 MG, UNK
     Route: 065
  6. PREDNISOLONE (NGX) [Suspect]
     Dosage: 5 MG, UNK
     Route: 065
  7. MYCOPHENOLATE MOFETIL [Concomitant]
  8. CYCLOSPORINE [Suspect]
     Indication: RENAL TRANSPLANT
     Dosage: 100 MG, DAY
  9. ZENAPAX [Concomitant]

REACTIONS (6)
  - MUSCULAR WEAKNESS [None]
  - MUSCULOSKELETAL DISCOMFORT [None]
  - OSTEONECROSIS [None]
  - OSTEOPOROSIS [None]
  - PAIN IN EXTREMITY [None]
  - SHOULDER PAIN [None]
